FAERS Safety Report 6549843-9 (Version None)
Quarter: 2010Q1

REPORT INFORMATION
  Report Type: 
  Country: None (occurrence: None)
  Receive Date: 20100125
  Receipt Date: 20100119
  Transmission Date: 20100710
  Serious: Yes (Life-Threatening, Hospitalization, Other)
  Sender: FDA-Public Use
  Company Number: ES-CELGENEUS-144-50794-09120138

PATIENT
  Age: 40 Year
  Sex: Male

DRUGS (3)
  1. VIDAZA [Suspect]
     Route: 058
  2. VIDAZA [Suspect]
     Route: 058
     Dates: start: 20090401
  3. ANTIBIOTICS [Concomitant]
     Indication: MASTOIDITIS
     Route: 065

REACTIONS (1)
  - MASTOIDITIS [None]
